FAERS Safety Report 24613435 (Version 2)
Quarter: 2024Q4

REPORT INFORMATION
  Report Type: Spontaneous
  Country: CZ (occurrence: CZ)
  Receive Date: 20241113
  Receipt Date: 20241115
  Transmission Date: 20250114
  Serious: Yes (Hospitalization)
  Sender: PFIZER
  Company Number: CZ-PFIZER INC-202400298765

PATIENT
  Sex: Male

DRUGS (3)
  1. TUCATINIB [Interacting]
     Active Substance: TUCATINIB
     Indication: Gallbladder cancer
     Dosage: TRASTUZUMAB + TUCATINIB, 5TH LINE OF TREATMENT
     Dates: start: 202312
  2. CLINDAMYCIN HYDROCHLORIDE [Interacting]
     Active Substance: CLINDAMYCIN HYDROCHLORIDE
     Indication: Cellulitis
     Dosage: 1800 MG, DAILY
     Dates: start: 202405
  3. TRASTUZUMAB [Concomitant]
     Active Substance: TRASTUZUMAB
     Indication: Gallbladder cancer
     Dosage: TRASTUZUMAB + TUCATINIB, 5TH LINE OF TREATMENT
     Dates: start: 202312

REACTIONS (4)
  - Liver function test increased [Unknown]
  - Drug interaction [Unknown]
  - Drug-induced liver injury [Unknown]
  - Off label use [Unknown]

NARRATIVE: CASE EVENT DATE: 20231201
